FAERS Safety Report 5384239-7 (Version None)
Quarter: 2007Q3

REPORT INFORMATION
  Report Type: 
  Country: None (occurrence: None)
  Receive Date: 20070711
  Receipt Date: 20070627
  Transmission Date: 20080115
  Serious: Yes (Death, Life-Threatening, Hospitalization, Other)
  Sender: FDA-Public Use
  Company Number: ES-GENENTECH-242809

PATIENT
  Age: 67 Year
  Sex: Male

DRUGS (6)
  1. RAPTIVA [Suspect]
     Indication: PSORIASIS
     Dosage: 1 MG/KG, 1/WEEK
     Route: 058
     Dates: start: 20070201
  2. AMIODARONE HCL [Suspect]
     Indication: ARRHYTHMIA
  3. ENALAPRIL MALEATE [Concomitant]
     Indication: HYPERTENSION
  4. PREDNISONE [Concomitant]
     Indication: POLYMYALGIA RHEUMATICA
  5. SIMVASTATIN [Concomitant]
     Indication: DYSLIPIDAEMIA
  6. ACENOCOUMAROL [Concomitant]
     Indication: ARRHYTHMIA

REACTIONS (2)
  - PULMONARY FIBROSIS [None]
  - SEPTIC SHOCK [None]
